FAERS Safety Report 10412627 (Version 1)
Quarter: 2014Q3

REPORT INFORMATION
  Report Type: Spontaneous
  Country: DK (occurrence: DK)
  Receive Date: 20140827
  Receipt Date: 20140827
  Transmission Date: 20150326
  Serious: Yes (Hospitalization)
  Sender: FDA-Public Use
  Company Number: PHHY2014DK104801

PATIENT
  Age: 49 Year
  Sex: Male

DRUGS (1)
  1. PANCILLIN [Suspect]
     Active Substance: PENICILLIN
     Indication: BORRELIA INFECTION
     Dosage: 660 MG, TID (STYRKE: 1,5 MILL. IE (660 MG).)
     Route: 048
     Dates: start: 20140627, end: 20140627

REACTIONS (4)
  - Hypersensitivity [Recovered/Resolved]
  - Throat tightness [Recovered/Resolved]
  - Paraesthesia oral [Recovered/Resolved]
  - Pruritus [Recovered/Resolved]

NARRATIVE: CASE EVENT DATE: 20140627
